FAERS Safety Report 10100630 (Version 1)
Quarter: 2014Q2

REPORT INFORMATION
  Report Type: Spontaneous
  Country: IN (occurrence: IN)
  Receive Date: 20140423
  Receipt Date: 20140423
  Transmission Date: 20141212
  Serious: Yes (Death)
  Sender: FDA-Public Use
  Company Number: PHHY2014IN046115

PATIENT
  Age: 29 Year
  Sex: Male

DRUGS (2)
  1. METOPROLOL [Suspect]
     Indication: TACHYCARDIA
     Dosage: 25 MG, 12 HOURLY
     Route: 042
  2. HEPARIN [Suspect]
     Indication: TACHYCARDIA
     Dosage: 5000 IU, 12 HOURLY

REACTIONS (2)
  - Cardiac arrest [Fatal]
  - Tachycardia [Unknown]
